FAERS Safety Report 18961968 (Version 3)
Quarter: 2022Q2

REPORT INFORMATION
  Report Type: Spontaneous
  Country: US (occurrence: US)
  Receive Date: 20210302
  Receipt Date: 20220424
  Transmission Date: 20220721
  Serious: Yes (Other)
  Sender: FDA-Public Use
  Company Number: US-SA-SAC20210225001136

PATIENT
  Sex: Female

DRUGS (1)
  1. AUBAGIO [Suspect]
     Active Substance: TERIFLUNOMIDE
     Indication: Multiple sclerosis
     Dosage: 7 MG, QD
     Route: 048
     Dates: start: 202005

REACTIONS (9)
  - Pneumonia [Recovering/Resolving]
  - Multiple sclerosis relapse [Unknown]
  - Cardiac disorder [Unknown]
  - Osteoporosis [Unknown]
  - Gastrointestinal disorder [Unknown]
  - Hypertension [Unknown]
  - Product dose omission issue [Unknown]
  - Therapy cessation [Unknown]
  - Adverse drug reaction [Unknown]

NARRATIVE: CASE EVENT DATE: 20210601
